FAERS Safety Report 14359472 (Version 1)
Quarter: 2018Q1

REPORT INFORMATION
  Report Type: Spontaneous
  Country: US (occurrence: US)
  Receive Date: 20180105
  Receipt Date: 20180105
  Transmission Date: 20180509
  Serious: No
  Sender: FDA-Public Use
  Company Number: US-SA-2017SA234187

PATIENT
  Age: 87 Year
  Sex: Male

DRUGS (2)
  1. XTANDI [Concomitant]
     Active Substance: ENZALUTAMIDE
     Indication: PROSTATE CANCER METASTATIC
  2. ZANTAC [Suspect]
     Active Substance: RANITIDINE HYDROCHLORIDE
     Indication: GASTROINTESTINAL HAEMORRHAGE
     Route: 048

REACTIONS (1)
  - Condition aggravated [Unknown]
